FAERS Safety Report 20405686 (Version 1)
Quarter: 2022Q1

REPORT INFORMATION
  Report Type: Spontaneous
  Country: US (occurrence: None)
  Receive Date: 20220130
  Receipt Date: 20220130
  Transmission Date: 20220423
  Serious: No
  Sender: FDA-Public Use
  Company Number: None

PATIENT
  Sex: Female

DRUGS (1)
  1. EQUATE COOL AND HEAT PAIN RELIEVING LIQUID [Suspect]
     Active Substance: MENTHOL
     Indication: Sciatica
     Route: 061
     Dates: start: 20220130, end: 20220130

REACTIONS (2)
  - Application site burn [None]
  - Application site erythema [None]

NARRATIVE: CASE EVENT DATE: 20220130
